FAERS Safety Report 15848942 (Version 2)
Quarter: 2019Q1

REPORT INFORMATION
  Report Type: Spontaneous
  Country: GB (occurrence: GB)
  Receive Date: 20190121
  Receipt Date: 20190315
  Transmission Date: 20190417
  Serious: Yes (Other)
  Sender: FDA-Public Use
  Company Number: PHHY2019GB011124

PATIENT
  Age: 78 Year
  Sex: Male

DRUGS (4)
  1. MYCOPHENOLATE MOFETIL. [Suspect]
     Active Substance: MYCOPHENOLATE MOFETIL
     Indication: FACTOR VIII DEFICIENCY
     Dosage: 1 G, QD
     Route: 065
  2. MYCOPHENOLATE MOFETIL. [Suspect]
     Active Substance: MYCOPHENOLATE MOFETIL
     Indication: ACQUIRED HAEMOPHILIA
     Dosage: 2 G, QD
     Route: 065
  3. PREDNISOLONE. [Suspect]
     Active Substance: PREDNISOLONE
     Indication: FACTOR VIII DEFICIENCY
     Dosage: 1 MG/KG, UNK
     Route: 065
  4. PREDNISOLONE. [Suspect]
     Active Substance: PREDNISOLONE
     Indication: ACQUIRED HAEMOPHILIA

REACTIONS (3)
  - Neutropenia [Recovered/Resolved]
  - Product use in unapproved indication [Unknown]
  - Infection [Unknown]
